FAERS Safety Report 23855358 (Version 1)
Quarter: 2024Q2

REPORT INFORMATION
  Report Type: Spontaneous
  Country: BR (occurrence: BR)
  Receive Date: 20240514
  Receipt Date: 20240514
  Transmission Date: 20240715
  Serious: No
  Sender: FDA-Public Use
  Company Number: BR-WT-2024-AMR-044955

PATIENT
  Age: 45 Year
  Sex: Female

DRUGS (1)
  1. AVODART [Suspect]
     Active Substance: DUTASTERIDE
     Indication: Lichen planopilaris
     Dosage: 0.5 MG, 1 DF, QD
     Route: 048
     Dates: start: 20220822

REACTIONS (3)
  - Product use in unapproved indication [Unknown]
  - Product use issue [Unknown]
  - Contraindicated product prescribed [Unknown]
